FAERS Safety Report 8453106-4 (Version None)
Quarter: 2012Q2

REPORT INFORMATION
  Report Type: 
  Country: None (occurrence: None)
  Receive Date: 20120620
  Receipt Date: 20120514
  Transmission Date: 20120825
  Serious: No
  Sender: FDA-Public Use
  Company Number: US-VERTEX PHARMACEUTICALS INC.-AE-2012-006632

PATIENT
  Sex: Male

DRUGS (4)
  1. RIBAVIRIN [Concomitant]
     Dates: start: 20120321
  2. PEGINTERFERON ALFA-2A [Concomitant]
     Indication: HEPATITIS C
     Dates: start: 20120222
  3. INCIVEK [Suspect]
     Indication: HEPATITIS C
     Route: 048
     Dates: start: 20120222, end: 20120502
  4. RIBAVIRIN [Concomitant]
     Indication: HEPATITIS C
     Dates: start: 20120222, end: 20120321

REACTIONS (6)
  - EYELID OEDEMA [None]
  - PRURITUS [None]
  - SKIN PLAQUE [None]
  - ANAEMIA [None]
  - ERYTHEMA [None]
  - RASH GENERALISED [None]
